FAERS Safety Report 5761639-4 (Version None)
Quarter: 2008Q2

REPORT INFORMATION
  Report Type: 
  Country: None (occurrence: None)
  Receive Date: 20080606
  Receipt Date: 20080527
  Transmission Date: 20081010
  Serious: Yes (Hospitalization, Other)
  Sender: FDA-Public Use
  Company Number: JP-PFIZER INC-2008043405

PATIENT
  Sex: Female

DRUGS (3)
  1. ALDACTONE [Suspect]
     Dosage: DAILY DOSE:25MG
     Route: 048
  2. WARFARIN SODIUM [Concomitant]
     Route: 048
  3. LASIX [Concomitant]

REACTIONS (1)
  - BREAST CANCER [None]
